FAERS Safety Report 5501611-2 (Version None)
Quarter: 2007Q4

REPORT INFORMATION
  Report Type: 
  Country: None (occurrence: None)
  Receive Date: 20071026
  Receipt Date: 20071026
  Transmission Date: 20080405
  Serious: Yes (Hospitalization)
  Sender: FDA-Public Use
  Company Number: None

PATIENT
  Age: 31 Year
  Sex: Female
  Weight: 120.2032 kg

DRUGS (1)
  1. PAMELOR [Suspect]
     Indication: NECK PAIN
     Dosage: 75MG 1 A DAY PO
     Route: 048
     Dates: start: 20070204, end: 20070211

REACTIONS (6)
  - AMNESIA [None]
  - DYSARTHRIA [None]
  - ESSENTIAL TREMOR [None]
  - HEART RATE INCREASED [None]
  - HYPERTENSION [None]
  - OVERDOSE [None]
